FAERS Safety Report 8146947-4 (Version None)
Quarter: 2012Q1

REPORT INFORMATION
  Report Type: 
  Country: None (occurrence: None)
  Receive Date: 20120217
  Receipt Date: 20120209
  Transmission Date: 20120608
  Serious: Yes (Hospitalization, Other)
  Sender: FDA-Public Use
  Company Number: US-RB-035647-11

PATIENT
  Age: 54 Year
  Sex: Female

DRUGS (5)
  1. ZANTAC [Concomitant]
     Indication: GASTRIC DISORDER
     Dosage: UNKNOWN DOSE
     Route: 065
  2. RESTORIL [Concomitant]
     Indication: SLEEP DISORDER
     Dosage: UNKNOWN DOSE
     Route: 065
  3. SUBOXONE [Suspect]
     Indication: DRUG DEPENDENCE
     Route: 060
     Dates: start: 20090101, end: 20111101
  4. SUBOXONE [Suspect]
     Route: 060
  5. KLONOPIN [Concomitant]
     Indication: ANXIETY DISORDER
     Route: 065

REACTIONS (4)
  - JOINT DISLOCATION [None]
  - PULMONARY THROMBOSIS [None]
  - FALL [None]
  - JOINT SWELLING [None]
